FAERS Safety Report 6177322-X (Version None)
Quarter: 2009Q2

REPORT INFORMATION
  Report Type: 
  Country: None (occurrence: None)
  Receive Date: 20090504
  Receipt Date: 20090424
  Transmission Date: 20091009
  Serious: Yes (Hospitalization)
  Sender: FDA-Public Use
  Company Number: US-BIOGENIDEC-2009BI008453

PATIENT
  Age: 75 Year
  Sex: Female

DRUGS (11)
  1. AVONEX [Suspect]
     Indication: MULTIPLE SCLEROSIS
     Route: 030
     Dates: start: 19981001
  2. NEURONTIN [Concomitant]
     Indication: DRUG USE FOR UNKNOWN INDICATION
  3. ULTRAM [Concomitant]
     Indication: DRUG USE FOR UNKNOWN INDICATION
  4. NORTRIPTYLINE HCL [Concomitant]
     Indication: DRUG USE FOR UNKNOWN INDICATION
  5. SYNTHROID [Concomitant]
     Indication: DRUG USE FOR UNKNOWN INDICATION
  6. SYNTHROID [Concomitant]
  7. ATENOLOL [Concomitant]
     Indication: DRUG USE FOR UNKNOWN INDICATION
  8. SIMVASTATIN [Concomitant]
     Indication: DRUG USE FOR UNKNOWN INDICATION
  9. DETROL [Concomitant]
     Indication: DRUG USE FOR UNKNOWN INDICATION
  10. AMBIEN [Concomitant]
     Indication: SLEEP DISORDER
  11. COUMADIN [Concomitant]
     Indication: PULMONARY EMBOLISM

REACTIONS (11)
  - ARRHYTHMIA [None]
  - BLOOD PRESSURE INADEQUATELY CONTROLLED [None]
  - CENTRAL NERVOUS SYSTEM LESION [None]
  - CERVICOGENIC HEADACHE [None]
  - CONVULSION [None]
  - DIZZINESS [None]
  - FALL [None]
  - HEAD INJURY [None]
  - HOT FLUSH [None]
  - LACUNAR INFARCTION [None]
  - SYNCOPE [None]
